FAERS Safety Report 7726678-2 (Version None)
Quarter: 2011Q3

REPORT INFORMATION
  Report Type: 
  Country: None (occurrence: None)
  Receive Date: 20110902
  Receipt Date: 20110902
  Transmission Date: 20111222
  Serious: Yes (Other)
  Sender: FDA-Public Use
  Company Number: None

PATIENT
  Sex: Female

DRUGS (1)
  1. CIPROFLOXACIN [Suspect]
     Indication: CYSTITIS
     Dosage: 2 TABLETS
     Route: 048

REACTIONS (9)
  - VISION BLURRED [None]
  - TENDONITIS [None]
  - GAIT DISTURBANCE [None]
  - ECONOMIC PROBLEM [None]
  - EATING DISORDER [None]
  - DIZZINESS [None]
  - IMPAIRED WORK ABILITY [None]
  - MALAISE [None]
  - QUALITY OF LIFE DECREASED [None]
